FAERS Safety Report 16217468 (Version 2)
Quarter: 2020Q3

REPORT INFORMATION
  Report Type: Report from Study
  Country: CN (occurrence: CN)
  Receive Date: 20190419
  Receipt Date: 20190424
  Transmission Date: 20201105
  Serious: Yes (Hospitalization)
  Sender: FDA-Public Use
  Company Number: CN-JNJFOC-20190416389

PATIENT
  Age: 62 Year
  Sex: Female
  Weight: 57 kg

DRUGS (15)
  1. DARATUMUMAB [Suspect]
     Active Substance: DARATUMUMAB
     Indication: PLASMA CELL MYELOMA
     Dosage: D1 {PER CYCLE}
     Route: 042
     Dates: start: 20181102
  2. ATORVASTATIN CALCIUM. [Concomitant]
     Active Substance: ATORVASTATIN CALCIUM
     Indication: HYPERLIPIDAEMIA
     Route: 048
     Dates: start: 20190107
  3. CEFOXITIN SODIUM [Concomitant]
     Active Substance: CEFOXITIN SODIUM
     Indication: INFLUENZA
     Dosage: ONCE
     Route: 050
     Dates: start: 20190130
  4. DOXOFYLLINE AND GLUCOSE [Concomitant]
     Indication: INFLUENZA
     Dosage: ONCE
     Route: 050
     Dates: start: 20190130
  5. COMBIVENT [Concomitant]
     Active Substance: ALBUTEROL SULFATE\IPRATROPIUM BROMIDE
     Indication: INFLUENZA
     Route: 055
     Dates: start: 20190130
  6. AMBROXOL HYDROCHLORIDE [Concomitant]
     Active Substance: AMBROXOL HYDROCHLORIDE
     Indication: INFLUENZA
     Route: 042
     Dates: start: 20190131
  7. DEXAMETHASONE. [Suspect]
     Active Substance: DEXAMETHASONE
     Indication: PLASMA CELL MYELOMA
     Dosage: D1,2,4,5,8,9,11,12 {PER CYCLE}
     Route: 048
     Dates: start: 20181102, end: 20190402
  8. ACICLOVIR [Concomitant]
     Active Substance: ACYCLOVIR
     Indication: ANTIVIRAL PROPHYLAXIS
     Route: 050
     Dates: start: 20190111
  9. VELCADE [Suspect]
     Active Substance: BORTEZOMIB
     Indication: PLASMA CELL MYELOMA
     Dosage: D1,4,8,11 {PER CYCLE}
     Route: 058
     Dates: start: 20181102, end: 20190329
  10. AMBROXOL HYDROCHLORIDE AND SODIUM CHLORIDE [Concomitant]
     Indication: INFLUENZA
     Dosage: ONCE
     Route: 050
     Dates: start: 20190130
  11. ATORVASTATIN CALCIUM. [Concomitant]
     Active Substance: ATORVASTATIN CALCIUM
     Indication: HYPERLIPIDAEMIA
     Route: 048
     Dates: start: 20190125, end: 20190201
  12. WYCAKON?G [Concomitant]
     Indication: PROPHYLAXIS
     Route: 048
     Dates: start: 20190305, end: 20190315
  13. DARATUMUMAB [Suspect]
     Active Substance: DARATUMUMAB
     Route: 042
  14. METHYLPREDNISOLONE SODIUM SUCCINATE. [Concomitant]
     Active Substance: METHYLPREDNISOLONE SODIUM SUCCINATE
     Indication: INFLUENZA
     Route: 050
     Dates: start: 20190130
  15. OMEPRAZOLE SODIUM [Concomitant]
     Active Substance: OMEPRAZOLE SODIUM
     Indication: INFLUENZA
     Route: 042
     Dates: start: 20190130

REACTIONS (1)
  - Gastritis [Recovering/Resolving]

NARRATIVE: CASE EVENT DATE: 20190329
